FAERS Safety Report 7774525-5 (Version None)
Quarter: 2011Q3

REPORT INFORMATION
  Report Type: 
  Country: None (occurrence: None)
  Receive Date: 20110923
  Receipt Date: 20110923
  Transmission Date: 20111222
  Serious: Yes (Other)
  Sender: FDA-Public Use
  Company Number: None

PATIENT
  Sex: Male
  Weight: 67 kg

DRUGS (4)
  1. VANCOMYCIN [Concomitant]
     Dosage: ACYCLOVIR 640MG
     Route: 042
     Dates: start: 20110921, end: 20110922
  2. ACCUTANE [Concomitant]
     Route: 048
  3. ADDERAL XR [Concomitant]
     Route: 048
  4. ACYCLOVIR [Suspect]
     Indication: MENINGITIS
     Dosage: VANCOMYCIN 1000MG
     Route: 042
     Dates: start: 20110921, end: 20110921

REACTIONS (1)
  - BLOOD CREATININE INCREASED [None]
